FAERS Safety Report 4308516-3 (Version None)
Quarter: 2004Q1

REPORT INFORMATION
  Report Type: 
  Country: None (occurrence: None)
  Receive Date: 20040301
  Receipt Date: 20040219
  Transmission Date: 20041129
  Serious: Yes (Hospitalization)
  Sender: FDA-Public Use
  Company Number: FR-BRISTOL-MYERS SQUIBB COMPANY-12511556

PATIENT
  Age: 96 Year
  Sex: Female

DRUGS (4)
  1. MUCOMYST [Suspect]
     Indication: BRONCHITIS
     Route: 048
     Dates: start: 20031211, end: 20031226
  2. BRICANYL [Concomitant]
     Route: 055
     Dates: start: 20031211, end: 20031219
  3. AUGMENTIN [Concomitant]
     Route: 048
     Dates: start: 20031211, end: 20031219
  4. ATROVENT [Concomitant]
     Route: 055
     Dates: start: 20031211, end: 20031219

REACTIONS (2)
  - HYPERTHERMIA [None]
  - RASH PUSTULAR [None]
